FAERS Safety Report 18046930 (Version 1)
Quarter: 2020Q3

REPORT INFORMATION
  Report Type: Spontaneous
  Country: US (occurrence: US)
  Receive Date: 20200720
  Receipt Date: 20200720
  Transmission Date: 20201103
  Serious: Yes (Other)
  Sender: FDA-Public Use
  Company Number: US-AJANTA PHARMA USA INC.-2087535

PATIENT
  Age: 52 Year
  Sex: Female
  Weight: 68.18 kg

DRUGS (5)
  1. GABAPENTIN. [Concomitant]
     Active Substance: GABAPENTIN
     Route: 048
  2. OMEPRAZOLE. [Concomitant]
     Active Substance: OMEPRAZOLE
  3. FLUOXETINE [Concomitant]
     Active Substance: FLUOXETINE HYDROCHLORIDE
  4. VORICONAZOLE. [Suspect]
     Active Substance: VORICONAZOLE
     Indication: RESPIRATORY TRACT INFECTION FUNGAL
     Route: 048
     Dates: start: 20190819, end: 20191107
  5. CETRIZINE [Concomitant]
     Active Substance: CETIRIZINE HYDROCHLORIDE

REACTIONS (15)
  - Tinnitus [Not Recovered/Not Resolved]
  - Brain oedema [Not Recovered/Not Resolved]
  - Vision blurred [Recovered/Resolved]
  - Eye swelling [Recovering/Resolving]
  - Confusional state [Not Recovered/Not Resolved]
  - Oral mucosal blistering [Recovering/Resolving]
  - Sleep disorder [Recovered/Resolved]
  - Head injury [Recovered/Resolved]
  - Aphasia [Not Recovered/Not Resolved]
  - Dizziness [Recovered/Resolved]
  - Headache [Recovered/Resolved]
  - Eye pain [Recovered/Resolved]
  - Fall [Recovered/Resolved]
  - Diplopia [Recovered/Resolved]
  - Tremor [Not Recovered/Not Resolved]

NARRATIVE: CASE EVENT DATE: 2019
